FAERS Safety Report 14194033 (Version 1)
Quarter: 2017Q4

REPORT INFORMATION
  Report Type: Spontaneous
  Country: US (occurrence: US)
  Receive Date: 20171116
  Receipt Date: 20171116
  Transmission Date: 20180321
  Serious: No
  Sender: FDA-Public Use
  Company Number: US-BRISTOL-MYERS SQUIBB COMPANY-BMS-2017-104062

PATIENT
  Sex: Female

DRUGS (1)
  1. KENALOG-40 [Suspect]
     Active Substance: TRIAMCINOLONE ACETONIDE
     Indication: PRODUCT USED FOR UNKNOWN INDICATION
     Route: 065
     Dates: start: 20170911, end: 20170911

REACTIONS (8)
  - Weight increased [Unknown]
  - Cushingoid [Unknown]
  - Hypoaesthesia [Unknown]
  - Mood swings [Unknown]
  - Acne [Unknown]
  - Hot flush [Unknown]
  - Irritability [Unknown]
  - Erythema [Unknown]
